FAERS Safety Report 17594229 (Version 2)
Quarter: 2020Q2

REPORT INFORMATION
  Report Type: Report from Study
  Country: US (occurrence: US)
  Receive Date: 20200327
  Receipt Date: 20200413
  Transmission Date: 20200713
  Serious: Yes (Death, Hospitalization)
  Sender: FDA-Public Use
  Company Number: US-EISAI MEDICAL RESEARCH-EC-2020-072268

PATIENT
  Age: 62 Year
  Sex: Male
  Weight: 104 kg

DRUGS (4)
  1. LENVIMA [Suspect]
     Active Substance: LENVATINIB
     Indication: RENAL CANCER
     Route: 048
     Dates: start: 201905
  2. GINSENG [Concomitant]
     Active Substance: ASIAN GINSENG
  3. EVEROLIMUS. [Concomitant]
     Active Substance: EVEROLIMUS
  4. LORATADINE. [Concomitant]
     Active Substance: LORATADINE

REACTIONS (2)
  - Death [Fatal]
  - Diabetes mellitus [Unknown]

NARRATIVE: CASE EVENT DATE: 20200330
